FAERS Safety Report 8579967-6 (Version None)
Quarter: 2012Q3

REPORT INFORMATION
  Report Type: 
  Country: None (occurrence: None)
  Receive Date: 20120808
  Receipt Date: 20120802
  Transmission Date: 20120928
  Serious: Yes (Death)
  Sender: FDA-Public Use
  Company Number: JP-CELGENEUS-087-50794-12080784

PATIENT
  Sex: Male
  Weight: 61 kg

DRUGS (11)
  1. VIDAZA [Suspect]
     Dosage: 75 MILLIGRAM/SQ. METER
     Route: 041
     Dates: start: 20120125, end: 20120125
  2. BACTRIM [Concomitant]
     Route: 065
     Dates: end: 20120128
  3. AMARYL [Concomitant]
     Route: 065
     Dates: end: 20120128
  4. ZOLPIDEM [Concomitant]
     Route: 065
     Dates: end: 20120128
  5. FLUCONAZOLE [Concomitant]
     Route: 065
     Dates: end: 20120125
  6. FUNGUARD [Concomitant]
     Route: 065
     Dates: start: 20120126, end: 20120129
  7. LANSOPRAZOLE [Concomitant]
     Route: 065
     Dates: end: 20120128
  8. MAGMITT [Concomitant]
     Route: 065
     Dates: end: 20120128
  9. NORVASC [Concomitant]
     Route: 065
     Dates: end: 20120128
  10. DORIPENEM MONOHYDRATE [Concomitant]
     Route: 065
     Dates: start: 20120127, end: 20120129
  11. VIDAZA [Suspect]
     Dosage: 75 MILLIGRAM/SQ. METER
     Route: 041
     Dates: start: 20111206, end: 20111212

REACTIONS (2)
  - PNEUMONIA [None]
  - LUNG DISORDER [None]
